FAERS Safety Report 8256465-0 (Version None)
Quarter: 2012Q2

REPORT INFORMATION
  Report Type: 
  Country: None (occurrence: None)
  Receive Date: 20120403
  Receipt Date: 20120402
  Transmission Date: 20120825
  Serious: Yes (Hospitalization)
  Sender: FDA-Public Use
  Company Number: US-BAYER-2012-031896

PATIENT
  Age: 59 Year
  Sex: Male

DRUGS (2)
  1. BETASERON [Suspect]
     Indication: PRIMARY PROGRESSIVE MULTIPLE SCLEROSIS
     Dosage: 8 MIU, QOD
     Route: 058
     Dates: start: 20100428
  2. AMPYRA [Suspect]
     Dosage: 10 MG, BID
     Dates: start: 20110401

REACTIONS (6)
  - CONVULSION [None]
  - INJECTION SITE PAIN [None]
  - MUSCULAR WEAKNESS [None]
  - COORDINATION ABNORMAL [None]
  - INJECTION SITE HAEMATOMA [None]
  - INJECTION SITE DISCHARGE [None]
